FAERS Safety Report 5671371-3 (Version None)
Quarter: 2008Q1

REPORT INFORMATION
  Report Type: 
  Country: None (occurrence: None)
  Receive Date: 20080313
  Receipt Date: 20070717
  Transmission Date: 20080703
  Serious: Yes (Hospitalization)
  Sender: FDA-Public Use
  Company Number: MK-6035909

PATIENT
  Age: 43 Year
  Sex: Female

DRUGS (4)
  1. RANITIDINE [Suspect]
     Indication: ABDOMINAL PAIN
  2. TROXIPIDE (TROXIPIDE) [Suspect]
     Indication: ABDOMINAL PAIN
  3. TIMEPIDIUM (TIMEPIDIUM) [Suspect]
     Indication: ABDOMINAL PAIN
  4. DIGESTIVE ENZYME (NO PREF. NAME) [Suspect]
     Indication: ABDOMINAL PAIN

REACTIONS (7)
  - ALANINE AMINOTRANSFERASE INCREASED [None]
  - BLOOD ALBUMIN DECREASED [None]
  - BLOOD ALKALINE PHOSPHATASE INCREASED [None]
  - BLOOD BILIRUBIN DECREASED [None]
  - GAMMA-GLUTAMYLTRANSFERASE INCREASED [None]
  - LEUCINE AMINOPEPTIDASE INCREASED [None]
  - SIALOADENITIS [None]
